FAERS Safety Report 15885579 (Version 1)
Quarter: 2019Q1

REPORT INFORMATION
  Report Type: Spontaneous
  Country: FR (occurrence: FR)
  Receive Date: 20190129
  Receipt Date: 20190129
  Transmission Date: 20190417
  Serious: Yes (Death)
  Sender: FDA-Public Use
  Company Number: FR-MYLANLABS-2019M1007561

PATIENT
  Age: 68 Year
  Sex: Female

DRUGS (5)
  1. VINCRISTINE                        /00078802/ [Interacting]
     Active Substance: VINCRISTINE
     Indication: ACUTE LYMPHOCYTIC LEUKAEMIA
     Dosage: 2 MILLIGRAM, CYCLE
     Route: 042
     Dates: start: 20131227, end: 20140103
  2. DAUNORUBICINE [Interacting]
     Active Substance: DAUNORUBICIN
     Indication: ACUTE LYMPHOCYTIC LEUKAEMIA
     Dosage: 53 MILLIGRAM, CYCLE
     Route: 042
     Dates: start: 20131227, end: 20131229
  3. ASPARAGINASE [Interacting]
     Active Substance: ASPARAGINASE
     Indication: ACUTE LYMPHOCYTIC LEUKAEMIA
     Dosage: 10640 INTERNATIONAL UNIT, CYCLE
     Route: 042
     Dates: start: 20140103, end: 20140107
  4. CYCLOPHOSPHAMIDE. [Interacting]
     Active Substance: CYCLOPHOSPHAMIDE
     Indication: ACUTE LYMPHOCYTIC LEUKAEMIA
     Dosage: 1330 MILLIGRAM, CYCLE
     Route: 042
     Dates: start: 20131227, end: 20131227
  5. PREDNISONE. [Suspect]
     Active Substance: PREDNISONE
     Indication: ACUTE LYMPHOCYTIC LEUKAEMIA
     Dosage: 100 MILLIGRAM, QD
     Route: 048
     Dates: start: 20131227, end: 20140107

REACTIONS (3)
  - Drug interaction [Unknown]
  - Aplasia [Fatal]
  - Sepsis [Fatal]

NARRATIVE: CASE EVENT DATE: 20140108
